FAERS Safety Report 6591224-6 (Version None)
Quarter: 2010Q1

REPORT INFORMATION
  Report Type: 
  Country: None (occurrence: None)
  Receive Date: 20100219
  Receipt Date: 20100210
  Transmission Date: 20100710
  Serious: Yes (Other)
  Sender: FDA-Public Use
  Company Number: PHEH2009US18105

PATIENT
  Sex: Male

DRUGS (11)
  1. NEORAL [Suspect]
     Indication: RENAL TRANSPLANT
     Dosage: UNK
     Dates: start: 19951115
  2. NEORAL [Suspect]
     Dosage: 125 MG, BID
     Route: 048
     Dates: start: 20091002
  3. VICODIN [Concomitant]
     Dosage: UNK
  4. IMURAN [Concomitant]
     Dosage: 25 MG, UNK
  5. PREDNISONE [Concomitant]
     Dosage: 5 MG, UNK
  6. ZANTAC [Concomitant]
     Dosage: 150 MG, BID
  7. TIMOPTIC [Concomitant]
  8. BETA EYE [Concomitant]
  9. LOPRESSOR [Concomitant]
     Dosage: 100 MG, BID
  10. PRAVACHOL [Concomitant]
  11. ECOTRIN [Concomitant]
     Dosage: 325 MG, QD

REACTIONS (4)
  - FALL [None]
  - ROTATOR CUFF SYNDROME [None]
  - SHOULDER OPERATION [None]
  - UPPER LIMB FRACTURE [None]
